FAERS Safety Report 7421666-8 (Version None)
Quarter: 2011Q2

REPORT INFORMATION
  Report Type: 
  Country: None (occurrence: None)
  Receive Date: 20110418
  Receipt Date: 20110404
  Transmission Date: 20111010
  Serious: Yes (Other)
  Sender: FDA-Public Use
  Company Number: CA-JNJFOC-20110402248

PATIENT
  Sex: Male
  Weight: 89.81 kg

DRUGS (2)
  1. REMICADE [Suspect]
     Indication: CROHN'S DISEASE
     Route: 042
  2. REMICADE [Suspect]
     Route: 042

REACTIONS (5)
  - AGITATION [None]
  - DEPRESSION [None]
  - RECTAL TENESMUS [None]
  - ABDOMINAL DISTENSION [None]
  - ABDOMINAL PAIN [None]
